FAERS Safety Report 8900042 (Version 2)
Quarter: 2012Q4

REPORT INFORMATION
  Report Type: 
  Country: JP (occurrence: JP)
  Receive Date: 20121109
  Receipt Date: 20121123
  Transmission Date: 20130627
  Serious: Yes (Other)
  Sender: FDA-Public Use
  Company Number: PHHY2012JP102854

PATIENT
  Age: 77 Year
  Sex: Female

DRUGS (3)
  1. EXELON PATCH [Suspect]
     Indication: DEMENTIA ALZHEIMER^S TYPE
     Dosage: 4.5 mg daily
     Route: 062
     Dates: start: 20121022, end: 20121102
  2. JANUVIA [Concomitant]
     Dosage: 50 mg, UNK
     Route: 048
  3. URSO [Concomitant]
     Dosage: 600 mg, UNK
     Route: 048
     Dates: end: 20121105

REACTIONS (1)
  - Musculoskeletal stiffness [Recovered/Resolved]
